FAERS Safety Report 8492549-X (Version None)
Quarter: 2012Q3

REPORT INFORMATION
  Report Type: 
  Country: None (occurrence: None)
  Receive Date: 20120706
  Receipt Date: 20120703
  Transmission Date: 20120928
  Serious: Yes (Other)
  Sender: FDA-Public Use
  Company Number: FR-ROCHE-1078814

PATIENT
  Sex: Female

DRUGS (7)
  1. PREDNISONE TAB [Concomitant]
     Indication: JUVENILE ARTHRITIS
  2. METHOTREXATE SODIUM [Concomitant]
     Indication: JUVENILE ARTHRITIS
     Route: 058
     Dates: start: 20100801
  3. METHOTREXATE [Concomitant]
     Route: 048
  4. TRIPHASIL-21 [Concomitant]
  5. ACTEMRA [Suspect]
     Indication: JUVENILE ARTHRITIS
     Route: 042
     Dates: start: 20101221
  6. FOLIC ACID [Concomitant]
  7. TRIPHASIL-21 [Concomitant]

REACTIONS (1)
  - VASCULITIS [None]
